FAERS Safety Report 4962960-X (Version None)
Quarter: 2006Q1

REPORT INFORMATION
  Report Type: 
  Country: None (occurrence: None)
  Receive Date: 20060331
  Receipt Date: 20060315
  Transmission Date: 20060701
  Serious: Yes (Life-Threatening)
  Sender: FDA-Public Use
  Company Number: S06-FRA-01306-01

PATIENT
  Age: 84 Year
  Sex: Male

DRUGS (5)
  1. CITALOPRAM HYDROBROMIDE [Suspect]
     Indication: BIPOLAR I DISORDER
     Dosage: 1 UNITS QD PO
     Route: 048
     Dates: start: 20051208, end: 20060111
  2. CITALOPRAM HYDROBROMIDE [Suspect]
     Indication: DEPRESSION
     Dosage: 1 UNITS QD PO
     Route: 048
     Dates: start: 20051208, end: 20060111
  3. KARDEGIC (ACETYLSALICYLATE LYSINE) [Concomitant]
  4. RAMIPRIL [Concomitant]
  5. LAMALINE [Concomitant]

REACTIONS (1)
  - AGRANULOCYTOSIS [None]
